FAERS Safety Report 12619669 (Version 1)
Quarter: 2016Q3

REPORT INFORMATION
  Report Type: Spontaneous
  Country: US (occurrence: US)
  Receive Date: 20160803
  Receipt Date: 20160803
  Transmission Date: 20161109
  Serious: No
  Sender: FDA-Public Use
  Company Number: US-TAKEDA-2016TUS013196

PATIENT
  Sex: Female
  Weight: 77.98 kg

DRUGS (2)
  1. DEXILANT [Suspect]
     Active Substance: DEXLANSOPRAZOLE
     Indication: GASTROOESOPHAGEAL REFLUX DISEASE
     Dosage: 60 MG, QD
     Route: 048
     Dates: start: 201606, end: 20160723
  2. DEXILANT [Suspect]
     Active Substance: DEXLANSOPRAZOLE
     Indication: OESOPHAGITIS

REACTIONS (5)
  - Fatigue [Recovering/Resolving]
  - Muscle spasms [Recovering/Resolving]
  - Abdominal distension [Recovering/Resolving]
  - Feeling abnormal [Recovering/Resolving]
  - Abdominal pain upper [Recovering/Resolving]
